FAERS Safety Report 8014691-X (Version None)
Quarter: 2011Q4

REPORT INFORMATION
  Report Type: 
  Country: None (occurrence: None)
  Receive Date: 20111229
  Receipt Date: 20111118
  Transmission Date: 20120403
  Serious: Yes (Hospitalization)
  Sender: FDA-Public Use
  Company Number: PHHY2011DE107290

PATIENT
  Age: 78 Year
  Sex: Male

DRUGS (4)
  1. LENALIDOMIDE [Suspect]
     Indication: MULTIPLE MYELOMA
     Dosage: 20 MG,
     Route: 048
     Dates: start: 20110922
  2. DEXMETHSONE [Suspect]
     Indication: MULTIPLE MYELOMA
     Dosage: 20 MG,
     Dates: start: 20110922
  3. ZOMETA [Suspect]
  4. TAZOBACTAM [Concomitant]

REACTIONS (4)
  - ASTHENIA [None]
  - OSTEONECROSIS OF JAW [None]
  - SEPSIS [None]
  - PYREXIA [None]
